FAERS Safety Report 8990050 (Version 2)
Quarter: 2013Q2

REPORT INFORMATION
  Report Type: Spontaneous
  Country: GR (occurrence: GR)
  Receive Date: 20121228
  Receipt Date: 20130501
  Transmission Date: 20140414
  Serious: Yes (Other)
  Sender: FDA-Public Use
  Company Number: PHHY2012GR120572

PATIENT
  Age: 25 Year
  Sex: Male

DRUGS (10)
  1. CEFEPIME [Suspect]
     Indication: NOSOCOMIAL INFECTION
     Dosage: 2 G, TID OVER 30 MINUTES
  2. ATENOLOL [Concomitant]
     Dosage: 25 MG, UNK
     Route: 048
  3. CITALOPRAM [Concomitant]
     Dosage: 20 MG, UNK
     Route: 048
  4. LORAZEPAM [Concomitant]
     Dosage: 2.5 MG, UNK
     Route: 048
  5. MICONAZOLE [Concomitant]
     Dosage: 120 MG, UNK
  6. OMEPRAZOLE [Concomitant]
     Dosage: 40 MG, UNK
     Route: 042
  7. PREGABALIN [Concomitant]
     Dosage: 75 MG, UNK
     Route: 048
  8. RISPERIDONE [Concomitant]
     Dosage: 1 MG, UNK
     Route: 048
  9. TINZAPARIN [Concomitant]
     Dosage: 4500 IU, UNK
     Route: 058
  10. VENLAFAXINE [Concomitant]
     Dosage: 75 MG, UNK
     Route: 048

REACTIONS (4)
  - Red man syndrome [Recovered/Resolved]
  - Pruritus [Recovered/Resolved]
  - Erythema [Recovered/Resolved]
  - Rash maculo-papular [Recovered/Resolved]
